FAERS Safety Report 20486990 (Version 1)
Quarter: 2022Q1

REPORT INFORMATION
  Report Type: Spontaneous
  Country: JP (occurrence: None)
  Receive Date: 20220217
  Receipt Date: 20220217
  Transmission Date: 20220424
  Serious: Yes (Hospitalization)
  Sender: FDA-Public Use
  Company Number: JP-Eisai Medical Research-EC-2022-108640

PATIENT
  Sex: Female

DRUGS (2)
  1. LENVIMA [Suspect]
     Active Substance: LENVATINIB
     Indication: Uterine cancer
     Route: 048
     Dates: start: 202201, end: 202202
  2. KEYTRUDA [Suspect]
     Active Substance: PEMBROLIZUMAB
     Indication: Uterine cancer
     Route: 041
     Dates: start: 202201

REACTIONS (1)
  - Decreased appetite [Recovering/Resolving]

NARRATIVE: CASE EVENT DATE: 20220201
